FAERS Safety Report 14482554 (Version 10)
Quarter: 2019Q1

REPORT INFORMATION
  Report Type: Report from Study
  Country: None (occurrence: IL)
  Receive Date: 20180202
  Receipt Date: 20190219
  Transmission Date: 20190417
  Serious: Yes (Hospitalization, Other)
  Sender: FDA-Public Use
  Company Number: IL-ABBVIE-18K-082-2244689-00

PATIENT
  Age: 76 Year
  Sex: Male

DRUGS (3)
  1. DUODOPA [Suspect]
     Active Substance: CARBIDOPA\LEVODOPA
     Indication: PARKINSON^S DISEASE
     Dosage: CURRENT MD: 7 ML, CD: 3.2 ML/ HOUR, CURRENT NIGHT DOSE: 2.3 ML, CURRENT ED: 0.8 ML
     Route: 050
     Dates: start: 20171109
  2. DUODOPA [Suspect]
     Active Substance: CARBIDOPA\LEVODOPA
     Dosage: MD 6 ML, CR 2.8 ML/HOUR, NIGHT 2.3 ML, ED 0.8 ML
     Route: 050
  3. DUODOPA [Suspect]
     Active Substance: CARBIDOPA\LEVODOPA
     Dosage: CURRENT MD: 6 ML, CD: 3.0 ML/ HOUR, CURRENT NIGHT DOSE: 2.3 ML, CURRENT ED: 0.8 ML
     Route: 050

REACTIONS (18)
  - Musculoskeletal stiffness [Unknown]
  - Hyponatraemia [Unknown]
  - Speech disorder [Unknown]
  - Gait inability [Unknown]
  - Urinary incontinence [Unknown]
  - Hyponatraemia [Unknown]
  - Device dislocation [Unknown]
  - Apathy [Unknown]
  - Aphasia [Unknown]
  - Constipation [Unknown]
  - Dyskinesia [Recovering/Resolving]
  - Urinary tract infection [Unknown]
  - Malaise [Unknown]
  - Haematuria [Unknown]
  - Drug effect incomplete [Unknown]
  - On and off phenomenon [Unknown]
  - Urinary tract infection [Unknown]
  - Vitamin B12 decreased [Unknown]

NARRATIVE: CASE EVENT DATE: 2018
